FAERS Safety Report 8379573-2 (Version None)
Quarter: 2012Q2

REPORT INFORMATION
  Report Type: 
  Country: None (occurrence: None)
  Receive Date: 20120523
  Receipt Date: 20120515
  Transmission Date: 20120825
  Serious: Yes (Hospitalization)
  Sender: FDA-Public Use
  Company Number: CA-JNJFOC-20110811298

PATIENT
  Sex: Male

DRUGS (25)
  1. ABIRATERONE ACETATE [Suspect]
     Route: 048
  2. DIDROCAL [Concomitant]
     Indication: OSTEOPOROSIS
     Route: 058
     Dates: start: 20091211, end: 20110819
  3. VITAMIN D [Concomitant]
     Indication: GENERAL PHYSICAL CONDITION
     Route: 048
     Dates: start: 20100206, end: 20110819
  4. NAPROXEN (ALEVE) [Concomitant]
     Indication: ARTHRALGIA
     Route: 048
     Dates: start: 20110120, end: 20110805
  5. ADALAT CC [Concomitant]
     Indication: HYPERTENSION
     Route: 048
     Dates: start: 20110822
  6. ZOLADEX [Concomitant]
     Route: 058
     Dates: start: 20090601
  7. LOVAZA [Concomitant]
     Indication: GENERAL PHYSICAL CONDITION
     Route: 048
     Dates: start: 20091001, end: 20110819
  8. EFFEXOR XR [Concomitant]
     Indication: HOT FLUSH
     Route: 048
     Dates: start: 20101229
  9. ASPIRIN [Concomitant]
     Indication: CEREBRAL ISCHAEMIA
     Route: 048
     Dates: start: 20110825, end: 20110828
  10. SLOW-K [Concomitant]
     Route: 048
     Dates: start: 20110821, end: 20110829
  11. SLOW-K [Concomitant]
     Route: 048
     Dates: start: 20110819, end: 20110820
  12. MULTI-VITAMINS [Concomitant]
     Indication: GENERAL PHYSICAL CONDITION
     Route: 048
     Dates: start: 20090101, end: 20110819
  13. HYDROCHLOROTHIAZIDE [Concomitant]
     Indication: HYPERTENSION
     Route: 048
     Dates: start: 20110120, end: 20110819
  14. VITAMIN B-12 [Concomitant]
     Indication: NUTRITIONAL SUPPORT
     Route: 048
     Dates: start: 20110822, end: 20110908
  15. PREDNISONE TAB [Suspect]
     Indication: PROSTATE CANCER METASTATIC
     Route: 048
     Dates: start: 20100120, end: 20110830
  16. ZOLADEX [Concomitant]
     Indication: PROSTATE CANCER
     Route: 058
     Dates: start: 20100120
  17. ZOLADEX [Concomitant]
     Indication: HORMONE THERAPY
     Route: 058
     Dates: start: 20090601
  18. ZOLADEX [Concomitant]
     Route: 058
     Dates: start: 20100120
  19. OXYBUTYNIN [Concomitant]
     Indication: URINARY INCONTINENCE
     Route: 048
     Dates: start: 20110823
  20. ABIRATERONE ACETATE [Suspect]
     Indication: PROSTATE CANCER METASTATIC
     Route: 048
     Dates: start: 20100120, end: 20110824
  21. SLOW-K [Concomitant]
     Indication: HYPOKALAEMIA
     Route: 048
     Dates: start: 20110809, end: 20110816
  22. CALCIUM [Concomitant]
     Indication: GENERAL PHYSICAL CONDITION
     Route: 048
     Dates: start: 20090201, end: 20110819
  23. QUINAPRIL [Concomitant]
     Indication: HYPERTENSION
     Route: 048
     Dates: start: 20100111
  24. NAPROSYN [Concomitant]
     Indication: ARTHRALGIA
     Route: 048
     Dates: start: 20110820
  25. OSTEO BI-FLEX [Concomitant]
     Indication: ARTHRALGIA
     Route: 048
     Dates: start: 20110503, end: 20110819

REACTIONS (1)
  - CEREBRAL ISCHAEMIA [None]
